FAERS Safety Report 4565519-1 (Version None)
Quarter: 2005Q1

REPORT INFORMATION
  Report Type: 
  Country: None (occurrence: None)
  Receive Date: 20050131
  Receipt Date: 20050117
  Transmission Date: 20050727
  Serious: Yes (Other)
  Sender: FDA-Public Use
  Company Number: FR-GLAXOSMITHKLINE-B0364887A

PATIENT
  Age: 77 Year
  Sex: Female

DRUGS (3)
  1. LAMICTAL [Suspect]
     Indication: EPILEPSY
     Route: 048
     Dates: start: 20040601
  2. REMINYL [Concomitant]
     Route: 048
  3. TAHOR [Concomitant]
     Route: 048
     Dates: end: 20041201

REACTIONS (3)
  - EPILEPSY [None]
  - HYPERSOMNIA [None]
  - MUSCULOSKELETAL STIFFNESS [None]
